FAERS Safety Report 10485308 (Version 1)
Quarter: 2014Q3

REPORT INFORMATION
  Report Type: Spontaneous
  Country: BE (occurrence: BE)
  Receive Date: 20140930
  Receipt Date: 20140930
  Transmission Date: 20150326
  Serious: Yes (Hospitalization)
  Sender: FDA-Public Use
  Company Number: BE-BAUSCH-BL-2014-005684

PATIENT
  Age: 50 Year
  Sex: Female

DRUGS (6)
  1. CEFTRIAXONE. [Suspect]
     Active Substance: CEFTRIAXONE
     Indication: HERPES SIMPLEX ENCEPHALITIS
     Route: 042
     Dates: start: 20110223, end: 20110225
  2. ADALIMUMAB [Concomitant]
     Active Substance: ADALIMUMAB
     Indication: PSORIASIS
  3. LEVETIRACETAM. [Suspect]
     Active Substance: LEVETIRACETAM
     Indication: HERPES SIMPLEX ENCEPHALITIS
     Route: 042
     Dates: start: 20110223
  4. ACICLOVIR [Suspect]
     Active Substance: ACYCLOVIR
     Indication: HERPES SIMPLEX ENCEPHALITIS
     Route: 042
     Dates: start: 20110223, end: 20110301
  5. ACICLOVIR [Suspect]
     Active Substance: ACYCLOVIR
     Route: 042
     Dates: start: 20110301
  6. AMPICILLIN [Suspect]
     Active Substance: AMPICILLIN
     Indication: HERPES SIMPLEX ENCEPHALITIS
     Route: 042
     Dates: start: 20110223, end: 20110225

REACTIONS (1)
  - Herpes simplex encephalitis [Recovering/Resolving]

NARRATIVE: CASE EVENT DATE: 2011
